FAERS Safety Report 14835139 (Version 1)
Quarter: 2018Q2

REPORT INFORMATION
  Report Type: Spontaneous
  Country: US (occurrence: US)
  Receive Date: 20180501
  Receipt Date: 20180501
  Transmission Date: 20180711
  Serious: Yes (Other)
  Sender: FDA-Public Use
  Company Number: US-BEH-2018090061

PATIENT
  Sex: Female
  Weight: 89.34 kg

DRUGS (25)
  1. TIZANIDINE. [Concomitant]
     Active Substance: TIZANIDINE
  2. OMEPRAZOLE. [Concomitant]
     Active Substance: OMEPRAZOLE
  3. LYRICA [Concomitant]
     Active Substance: PREGABALIN
  4. MULTIVITAMINS [Concomitant]
     Active Substance: VITAMINS
  5. CYANOCOBALAMIN. [Concomitant]
     Active Substance: CYANOCOBALAMIN
  6. CARAFATE [Concomitant]
     Active Substance: SUCRALFATE
  7. STERILE WATER [Concomitant]
     Active Substance: WATER
  8. IRON [Concomitant]
     Active Substance: IRON
  9. SODIUM CHLORIDE. [Concomitant]
     Active Substance: SODIUM CHLORIDE
  10. ACETAMINOPHEN AND CODEINE [Concomitant]
     Active Substance: ACETAMINOPHEN\CODEINE PHOSPHATE
  11. FUROSEMIDE. [Concomitant]
     Active Substance: FUROSEMIDE
  12. CLONAZEPAM. [Concomitant]
     Active Substance: CLONAZEPAM
  13. ZYRTEC [Concomitant]
     Active Substance: CETIRIZINE HYDROCHLORIDE
  14. CALCIUM +D3 [Concomitant]
     Active Substance: CALCIUM\CHOLECALCIFEROL
  15. PRIVIGEN [Suspect]
     Active Substance: HUMAN IMMUNOGLOBULIN G
     Indication: CHRONIC INFLAMMATORY DEMYELINATING POLYRADICULONEUROPATHY
     Dosage: 65 G, EVERY THREE WEEKS
     Route: 042
     Dates: start: 20171128
  16. DIPHENHYDRAMINE. [Concomitant]
     Active Substance: DIPHENHYDRAMINE
  17. HEPARIN [Concomitant]
     Active Substance: HEPARIN SODIUM
  18. CLARITIN [Concomitant]
     Active Substance: LORATADINE
  19. ACETAMINOPHEN. [Concomitant]
     Active Substance: ACETAMINOPHEN
  20. MAXALT [Concomitant]
     Active Substance: RIZATRIPTAN BENZOATE
  21. MONTELUKAST [Concomitant]
     Active Substance: MONTELUKAST SODIUM
  22. PRIVIGEN [Suspect]
     Active Substance: HUMAN IMMUNOGLOBULIN G
     Dosage: UNK
     Route: 042
  23. LIDOCAINE. [Concomitant]
     Active Substance: LIDOCAINE
  24. LMX                                /00033401/ [Concomitant]
  25. EPINEPHRINE. [Concomitant]
     Active Substance: EPINEPHRINE

REACTIONS (1)
  - Spinal nerve stimulator implantation [Unknown]
